FAERS Safety Report 18935243 (Version 1)
Quarter: 2021Q1

REPORT INFORMATION
  Report Type: Spontaneous
  Country: US (occurrence: US)
  Receive Date: 20210224
  Receipt Date: 20210224
  Transmission Date: 20210420
  Serious: No
  Sender: FDA-Public Use
  Company Number: US-TERSERA THERAPEUTICS LLC-2019TRS002179

PATIENT

DRUGS (14)
  1. PRIALT [Suspect]
     Active Substance: ZICONOTIDE ACETATE
     Dosage: 0.999 MCG, QD (CONCENTRATION:4 MCG )
     Route: 037
     Dates: end: 20190829
  2. BUPIVACAINE. [Suspect]
     Active Substance: BUPIVACAINE
     Dosage: 2.997 MCG, QD (CONCENTRATION: 12 MCG)
     Route: 037
  3. BUPIVACAINE. [Suspect]
     Active Substance: BUPIVACAINE
     Indication: PRODUCT USED FOR UNKNOWN INDICATION
     Dosage: 3.466 MCG, QD (CONCENTRATION: 12 MCG)
     Route: 037
  4. BUPIVACAINE. [Suspect]
     Active Substance: BUPIVACAINE
     Dosage: 3.963 MG, QD (CONCENTRATION: 20 MG)
     Route: 037
  5. PRIALT [Suspect]
     Active Substance: ZICONOTIDE ACETATE
     Indication: PRODUCT USED FOR UNKNOWN INDICATION
     Dosage: UNK
     Route: 037
  6. PRIALT [Suspect]
     Active Substance: ZICONOTIDE ACETATE
     Dosage: 0.551 MCG, QD (CONCENTRATION:1 MCG)
     Route: 037
  7. CLONIDINE. [Suspect]
     Active Substance: CLONIDINE
     Dosage: 13.112 MCG, QD
     Route: 037
     Dates: end: 20190829
  8. PRIALT [Suspect]
     Active Substance: ZICONOTIDE ACETATE
     Dosage: 0.525 MCG, QD (CONCENTRATION:1 MCG)
     Route: 037
  9. PRIALT [Suspect]
     Active Substance: ZICONOTIDE ACETATE
     Dosage: 0.749 MCG, QD
     Route: 037
  10. BUPIVACAINE. [Suspect]
     Active Substance: BUPIVACAINE
     Dosage: 2.247 MCG, QD
     Route: 037
  11. FENTANYL. [Suspect]
     Active Substance: FENTANYL
     Indication: PRODUCT USED FOR UNKNOWN INDICATION
     Dosage: UNK
     Route: 037
     Dates: start: 20191107, end: 20191112
  12. BUPIVACAINE. [Suspect]
     Active Substance: BUPIVACAINE
     Dosage: 4.006 MG, QD (CONCENTRATION: 12 MG)
     Route: 037
  13. CLONIDINE. [Suspect]
     Active Substance: CLONIDINE
     Indication: PRODUCT USED FOR UNKNOWN INDICATION
     Dosage: 20.223 MCG, QD (CONCENTRATION: 70 MCG)
     Route: 037
     Dates: start: 20190821
  14. PRIALT [Suspect]
     Active Substance: ZICONOTIDE ACETATE
     Dosage: 1.155 MCG, QD (CONCENTRATION:4 MCG)
     Route: 037

REACTIONS (11)
  - Device issue [Unknown]
  - Drug ineffective [Recovered/Resolved]
  - Weight decreased [Unknown]
  - Somnolence [Recovered/Resolved]
  - Off label use [Unknown]
  - Implant site pain [Recovered/Resolved]
  - Bone pain [Recovered/Resolved]
  - Vomiting [Recovered/Resolved]
  - Fatigue [Recovered/Resolved]
  - Medical device site discomfort [Recovered/Resolved]
  - Nausea [Recovered/Resolved]

NARRATIVE: CASE EVENT DATE: 20190619
